FAERS Safety Report 18350035 (Version 2)
Quarter: 2020Q4

REPORT INFORMATION
  Report Type: Spontaneous
  Country: DE (occurrence: DE)
  Receive Date: 20201006
  Receipt Date: 20201118
  Transmission Date: 20210114
  Serious: Yes (Other)
  Sender: FDA-Public Use
  Company Number: DE-PFIZER INC-2020380541

PATIENT
  Age: 54 Year
  Sex: Female
  Weight: 63 kg

DRUGS (7)
  1. VENLAFAXINE HCL [Suspect]
     Active Substance: VENLAFAXINE HYDROCHLORIDE
     Indication: FATIGUE
     Dosage: 37.5MG TO MAX. 225MG.
     Dates: start: 20200123, end: 20200826
  2. VENLAFAXINE HCL [Suspect]
     Active Substance: VENLAFAXINE HYDROCHLORIDE
     Indication: ANXIETY DISORDER
  3. VENLAFAXINE HCL [Suspect]
     Active Substance: VENLAFAXINE HYDROCHLORIDE
     Indication: DEPRESSION
  4. VENLAFAXIN HEUMANN [Suspect]
     Active Substance: VENLAFAXINE HYDROCHLORIDE
     Indication: DEPRESSION
     Dosage: 150 MG
     Dates: start: 20200315, end: 20200728
  5. VENLAFAXIN NEURAXPHARM [Suspect]
     Active Substance: VENLAFAXINE HYDROCHLORIDE
     Indication: DEPRESSION
     Dosage: 75 MG
     Dates: start: 20200729, end: 20200812
  6. VENLAFAXIN NEURAXPHARM [Suspect]
     Active Substance: VENLAFAXINE HYDROCHLORIDE
     Dosage: 37.5 MG (37.5 MG STRENGTH)
     Dates: start: 20200813, end: 20200827
  7. VENLAFAXINE HCL [Suspect]
     Active Substance: VENLAFAXINE HYDROCHLORIDE
     Dosage: BETWEEN  112.5 MG AND 225 MG
     Dates: start: 20190428, end: 20200223

REACTIONS (21)
  - Arrhythmia [Not Recovered/Not Resolved]
  - Illusion [Recovered/Resolved]
  - Decreased appetite [Unknown]
  - Hyperhidrosis [Unknown]
  - Feeling cold [Unknown]
  - Blood cholesterol increased [Unknown]
  - Somnolence [Recovered/Resolved]
  - Condition aggravated [Recovered/Resolved]
  - Withdrawal syndrome [Unknown]
  - Dizziness [Recovered/Resolved]
  - Amenorrhoea [Not Recovered/Not Resolved]
  - Menstruation irregular [Unknown]
  - Menorrhagia [Not Recovered/Not Resolved]
  - Pruritus [Not Recovered/Not Resolved]
  - Loss of personal independence in daily activities [Unknown]
  - Dysaesthesia [Recovered/Resolved]
  - Head discomfort [Not Recovered/Not Resolved]
  - Menstrual disorder [Not Recovered/Not Resolved]
  - Nausea [Recovered/Resolved]
  - Electrocardiogram QT prolonged [Not Recovered/Not Resolved]
  - Feeling of body temperature change [Recovered/Resolved]

NARRATIVE: CASE EVENT DATE: 2019
